FAERS Safety Report 13032619 (Version 1)
Quarter: 2016Q4

REPORT INFORMATION
  Report Type: Spontaneous
  Country: US (occurrence: US)
  Receive Date: 20161215
  Receipt Date: 20161215
  Transmission Date: 20170207
  Serious: No
  Sender: FDA-Public Use
  Company Number: US-PFIZER INC-2016580444

PATIENT
  Sex: Female

DRUGS (1)
  1. XELJANZ XR [Suspect]
     Active Substance: TOFACITINIB CITRATE

REACTIONS (5)
  - Arthralgia [Unknown]
  - Musculoskeletal disorder [Unknown]
  - Synovitis [Unknown]
  - Swelling [Unknown]
  - Musculoskeletal stiffness [Unknown]
